FAERS Safety Report 9357884 (Version 1)
Quarter: 2013Q2

REPORT INFORMATION
  Report Type: Spontaneous
  Country: US (occurrence: None)
  Receive Date: 20130619
  Receipt Date: 20130619
  Transmission Date: 20140414
  Serious: No
  Sender: FDA-Public Use
  Company Number: None

PATIENT
  Age: 58 Year
  Sex: Female

DRUGS (1)
  1. ARMOUR THYROID [Suspect]
     Route: 048
     Dates: start: 20110503

REACTIONS (2)
  - Product substitution issue [None]
  - No adverse event [None]
